FAERS Safety Report 12205598 (Version 1)
Quarter: 2016Q1

REPORT INFORMATION
  Report Type: Not Available
  Country: IN (occurrence: IN)
  Receive Date: 20160323
  Receipt Date: 20160323
  Transmission Date: 20160526
  Serious: Yes (Hospitalization)
  Sender: FDA-Public Use
  Company Number: IN-ANIPHARMA-2016-IN-000008

PATIENT
  Age: 58 Year
  Sex: Male

DRUGS (13)
  1. UNSPECIFIED HYPOGLYCEMIC MEDICATION [Concomitant]
  2. TORSEMIDE. [Concomitant]
     Active Substance: TORSEMIDE
  3. MIDAZOLAM [Concomitant]
     Active Substance: MIDAZOLAM\MIDAZOLAM HYDROCHLORIDE
  4. FUROSEMIDE. [Concomitant]
     Active Substance: FUROSEMIDE
     Route: 042
  5. FENTANYL. [Suspect]
     Active Substance: FENTANYL
     Route: 042
  6. DOMPERIDONE [Concomitant]
     Active Substance: DOMPERIDONE
  7. FLUVOXAMINE (NON-SPECIFIC) [Suspect]
     Active Substance: FLUVOXAMINE
     Dosage: 100 MG
  8. SERTRALINE [Suspect]
     Active Substance: SERTRALINE HYDROCHLORIDE
     Dosage: 100 MG
  9. FLUDROCORTISONE [Concomitant]
     Active Substance: FLUDROCORTISONE
  10. LINEZOLID. [Suspect]
     Active Substance: LINEZOLID
     Dosage: 600 MG EVERY 12 HOURS
     Route: 042
  11. FLUOXETINE HYDROCHLORIDE (NON-SPECIFIC) [Suspect]
     Active Substance: FLUOXETINE HYDROCHLORIDE
     Dosage: 60 MG
  12. CLONIDINE. [Concomitant]
     Active Substance: CLONIDINE
  13. NITROGLYCERIN. [Concomitant]
     Active Substance: NITROGLYCERIN
     Route: 042

REACTIONS (2)
  - Pulmonary oedema [Unknown]
  - Serotonin syndrome [Unknown]
